FAERS Safety Report 5354894-6 (Version None)
Quarter: 2007Q2

REPORT INFORMATION
  Report Type: 
  Country: None (occurrence: None)
  Receive Date: 20070611
  Receipt Date: 20070604
  Transmission Date: 20071010
  Serious: Yes (Hospitalization)
  Sender: FDA-Public Use
  Company Number: SP01266

PATIENT
  Sex: Female

DRUGS (1)
  1. OSMOPREP [Suspect]
     Indication: COLONOSCOPY
     Dates: start: 20070603

REACTIONS (3)
  - FLATULENCE [None]
  - GASTROINTESTINAL PAIN [None]
  - VOLVULUS [None]
